FAERS Safety Report 9727151 (Version 1)
Quarter: 2013Q4

REPORT INFORMATION
  Report Type: Spontaneous
  Country: US (occurrence: US)
  Receive Date: 20131203
  Receipt Date: 20131203
  Transmission Date: 20140711
  Serious: No
  Sender: FDA-Public Use
  Company Number: US-BAYER-2013-141147

PATIENT
  Age: 35 Year
  Sex: Female

DRUGS (2)
  1. MIRENA [Suspect]
     Indication: CONTRACEPTION
     Dosage: 20 MCG/24HR, CONT
     Route: 015
     Dates: start: 20131021, end: 20131104
  2. MIRENA [Suspect]
     Indication: MENORRHAGIA

REACTIONS (4)
  - Device expulsion [None]
  - Abdominal pain lower [None]
  - Pain [None]
  - Device difficult to use [None]
